FAERS Safety Report 5538130-3 (Version None)
Quarter: 2007Q4

REPORT INFORMATION
  Report Type: 
  Country: None (occurrence: None)
  Receive Date: 20071207
  Receipt Date: 20071126
  Transmission Date: 20080405
  Serious: Yes (Other)
  Sender: FDA-Public Use
  Company Number: US-PFIZER INC-2007101479

PATIENT
  Sex: Male

DRUGS (1)
  1. CHANTIX [Suspect]
     Indication: SMOKING CESSATION THERAPY
     Dates: start: 20071101, end: 20071123

REACTIONS (5)
  - CONSTIPATION [None]
  - INSOMNIA [None]
  - LACRIMATION INCREASED [None]
  - POLLAKIURIA [None]
  - URINARY TRACT INFECTION [None]
